FAERS Safety Report 17946095 (Version 1)
Quarter: 2020Q2

REPORT INFORMATION
  Report Type: Spontaneous
  Country: BR (occurrence: BR)
  Receive Date: 20200625
  Receipt Date: 20200625
  Transmission Date: 20200714
  Serious: Yes (Other)
  Sender: FDA-Public Use
  Company Number: NVSC2020BR176418

PATIENT

DRUGS (1)
  1. PREDNISONE. [Suspect]
     Active Substance: PREDNISONE
     Indication: GLOMERULONEPHRITIS MEMBRANOPROLIFERATIVE
     Dosage: 0.5 MG/KG
     Route: 065

REACTIONS (4)
  - Product use in unapproved indication [Unknown]
  - Therapy non-responder [Unknown]
  - Glomerulonephritis membranoproliferative [Unknown]
  - Graft loss [Unknown]
